FAERS Safety Report 9780299 (Version 1)
Quarter: 2013Q4

REPORT INFORMATION
  Report Type: Report from Study
  Country: DE (occurrence: DE)
  Receive Date: 20131224
  Receipt Date: 20131224
  Transmission Date: 20140711
  Serious: Yes (Hospitalization, Disabling, Other)
  Sender: FDA-Public Use
  Company Number: DE-AMGEN-DEUCT2013089820

PATIENT
  Age: 19 Year
  Sex: Female

DRUGS (3)
  1. ETANERCEPT [Suspect]
     Indication: PRODUCT USED FOR UNKNOWN INDICATION
     Dosage: 20 MG, UNK
     Route: 065
     Dates: start: 20090810
  2. ETANERCEPT [Suspect]
     Dosage: UNK
     Route: 065
     Dates: end: 20130215
  3. ETANERCEPT [Suspect]
     Dosage: 20 MG, UNK, ^EVERY 3,5 DAYS^
     Route: 065
     Dates: end: 201306

REACTIONS (1)
  - Encephalitis autoimmune [Recovered/Resolved with Sequelae]
